FAERS Safety Report 12418784 (Version 1)
Quarter: 2016Q2

REPORT INFORMATION
  Report Type: Spontaneous
  Country: US (occurrence: None)
  Receive Date: 20160527
  Receipt Date: 20160527
  Transmission Date: 20160815
  Serious: No
  Sender: FDA-Public Use
  Company Number: None

PATIENT
  Age: 37 Year
  Sex: Male
  Weight: 68 kg

DRUGS (3)
  1. MEROPENEM. [Concomitant]
     Active Substance: MEROPENEM
  2. POLYMYXIN B. [Suspect]
     Active Substance: POLYMYXIN B
     Indication: BACTERAEMIA
     Route: 042
     Dates: start: 20160520, end: 20160520
  3. ENOXAPARIN [Concomitant]
     Active Substance: ENOXAPARIN

REACTIONS (5)
  - Hypoaesthesia oral [None]
  - Dizziness [None]
  - Fatigue [None]
  - Infusion related reaction [None]
  - Hypoaesthesia [None]

NARRATIVE: CASE EVENT DATE: 20160520
